FAERS Safety Report 5612582-2 (Version None)
Quarter: 2008Q1

REPORT INFORMATION
  Report Type: 
  Country: None (occurrence: None)
  Receive Date: 20080204
  Receipt Date: 20080129
  Transmission Date: 20080703
  Serious: Yes (Hospitalization, Other)
  Sender: FDA-Public Use
  Company Number: A0702757A

PATIENT
  Age: 78 Year
  Sex: Female

DRUGS (9)
  1. COREG [Suspect]
     Indication: HYPERTENSION
     Dosage: 3.125MG TWICE PER DAY
     Route: 048
     Dates: start: 20070925, end: 20071211
  2. DIOVAN [Suspect]
     Dates: start: 20071101, end: 20080101
  3. TYLENOL [Suspect]
  4. ATARAX [Suspect]
  5. ATIVAN [Suspect]
  6. ALTACE [Suspect]
  7. INSULIN [Suspect]
  8. B COMPLEX VITAMINS [Suspect]
  9. ASPIRIN [Suspect]

REACTIONS (7)
  - BLOOD GLUCOSE INCREASED [None]
  - CONVULSION [None]
  - DIZZINESS [None]
  - DRUG HYPERSENSITIVITY [None]
  - FEELING ABNORMAL [None]
  - RASH PRURITIC [None]
  - SYNCOPE [None]
